FAERS Safety Report 23074803 (Version 1)
Quarter: 2023Q4

REPORT INFORMATION
  Report Type: Spontaneous
  Country: CN (occurrence: CN)
  Receive Date: 20231017
  Receipt Date: 20231017
  Transmission Date: 20240110
  Serious: Yes (Life-Threatening, Other)
  Sender: FDA-Public Use
  Company Number: CN-009507513-2310CHN002385

PATIENT
  Age: 89 Year
  Sex: Female

DRUGS (1)
  1. INVANZ [Suspect]
     Active Substance: ERTAPENEM SODIUM
     Indication: Pneumonia
     Dosage: 1 GRAM, ONCE A DAY (QD)
     Route: 041
     Dates: start: 20230928, end: 20231003

REACTIONS (4)
  - Anaphylactoid reaction [Recovering/Resolving]
  - Epilepsy [Recovered/Resolved]
  - Pneumonia [Unknown]
  - Asthma [Recovered/Resolved]

NARRATIVE: CASE EVENT DATE: 20230101
